FAERS Safety Report 8041522-4 (Version None)
Quarter: 2012Q1

REPORT INFORMATION
  Report Type: 
  Country: None (occurrence: None)
  Receive Date: 20120112
  Receipt Date: 20120106
  Transmission Date: 20120608
  Serious: Yes (Hospitalization)
  Sender: FDA-Public Use
  Company Number: US-JNJFOC-20120103325

PATIENT
  Sex: Male
  Weight: 65.77 kg

DRUGS (6)
  1. FISH OIL [Concomitant]
     Route: 048
     Dates: start: 20060101
  2. BLOOD PRESSURE MEDICATION NOS [Concomitant]
     Indication: BLOOD PRESSURE
     Route: 048
     Dates: start: 20060101
  3. DURAGESIC-100 [Suspect]
     Indication: BACK PAIN
     Route: 062
  4. FENTANYL-100 [Suspect]
     Indication: PRODUCT USED FOR UNKNOWN INDICATION
     Route: 062
  5. PLAVIX [Concomitant]
     Indication: BLOOD DISORDER
     Route: 048
     Dates: start: 20060101
  6. LIPITOR [Concomitant]
     Route: 048
     Dates: start: 20060101

REACTIONS (4)
  - WRONG TECHNIQUE IN DRUG USAGE PROCESS [None]
  - PRODUCT QUALITY ISSUE [None]
  - MYOCARDIAL INFARCTION [None]
  - DERMATITIS CONTACT [None]
